FAERS Safety Report 8270822-8 (Version None)
Quarter: 2012Q2

REPORT INFORMATION
  Report Type: 
  Country: None (occurrence: None)
  Receive Date: 20120410
  Receipt Date: 20120405
  Transmission Date: 20120825
  Serious: Yes (Other)
  Sender: FDA-Public Use
  Company Number: NL-PFIZER INC-2012086850

PATIENT
  Age: 42 Year
  Sex: Female

DRUGS (1)
  1. TRIPHASIL-21 [Suspect]
     Dosage: UNK

REACTIONS (2)
  - MULTIPLE SCLEROSIS [None]
  - INFLAMMATION [None]
